FAERS Safety Report 23654981 (Version 2)
Quarter: 2024Q2

REPORT INFORMATION
  Report Type: Spontaneous
  Country: CA (occurrence: CA)
  Receive Date: 20240320
  Receipt Date: 20240513
  Transmission Date: 20240716
  Serious: Yes (Other)
  Sender: FDA-Public Use
  Company Number: CA-PFIZER INC-202400067447

PATIENT

DRUGS (1)
  1. RITUXIMAB [Suspect]
     Active Substance: RITUXIMAB
     Indication: Anti-neutrophil cytoplasmic antibody positive vasculitis
     Dosage: 1 DF, 2 DOSES
     Dates: start: 202306, end: 202306

REACTIONS (2)
  - Haemodialysis [Unknown]
  - Off label use [Unknown]

NARRATIVE: CASE EVENT DATE: 20230601
